FAERS Safety Report 9935316 (Version 2)
Quarter: 2014Q1

REPORT INFORMATION
  Report Type: Spontaneous
  Country: NO (occurrence: NO)
  Receive Date: 20140228
  Receipt Date: 20140313
  Transmission Date: 20141002
  Serious: Yes (Life-Threatening, Hospitalization)
  Sender: FDA-Public Use
  Company Number: NO-PFIZER INC-2014055162

PATIENT
  Age: 8 Decade
  Sex: Male

DRUGS (11)
  1. ZYVOXID [Suspect]
     Indication: LOCALISED INFECTION
     Dosage: 600 MG, 2X/DAY
     Route: 048
  2. MAREVAN [Concomitant]
     Indication: ATRIAL FIBRILLATION
  3. SELO-ZOK [Concomitant]
  4. ZANIDIP [Concomitant]
  5. COAPROVEL [Concomitant]
  6. LASIX RETARD [Concomitant]
  7. PHYSIOTENS [Concomitant]
     Indication: HYPERTENSION
  8. ZYLORIC [Concomitant]
     Indication: GOUT
  9. PRAVACHOL [Concomitant]
     Indication: PROPHYLAXIS
  10. ETALPHA [Concomitant]
  11. MAGNESIUM [Concomitant]

REACTIONS (5)
  - Lactic acidosis [Recovered/Resolved with Sequelae]
  - Anaemia [Recovering/Resolving]
  - Hepatocellular injury [Recovered/Resolved]
  - Off label use [Recovered/Resolved]
  - Thrombocytopenia [Recovered/Resolved]
